FAERS Safety Report 16332948 (Version 1)
Quarter: 2019Q2

REPORT INFORMATION
  Report Type: Spontaneous
  Country: JP (occurrence: JP)
  Receive Date: 20190520
  Receipt Date: 20190520
  Transmission Date: 20190711
  Serious: Yes (Death, Other)
  Sender: FDA-Public Use
  Company Number: JP-ELI_LILLY_AND_COMPANY-JP201905007439

PATIENT
  Age: 65 Year
  Sex: Male
  Weight: 70 kg

DRUGS (4)
  1. FLUOROURACIL. [Suspect]
     Active Substance: FLUOROURACIL
     Indication: RECTAL CANCER STAGE IV
     Dosage: UNK
     Route: 041
     Dates: start: 201807, end: 201812
  2. LEVOFOLINATE CALCIUM [Suspect]
     Active Substance: LEVOLEUCOVORIN CALCIUM
     Indication: RECTAL CANCER STAGE IV
     Dosage: UNK
     Route: 065
     Dates: start: 201806, end: 201812
  3. IRINOTECAN [IRINOTECAN HYDROCHLORIDE] [Suspect]
     Active Substance: IRINOTECAN HYDROCHLORIDE
     Indication: RECTAL CANCER STAGE IV
     Dosage: UNK
     Route: 041
     Dates: start: 201807, end: 201812
  4. CYRAMZA [Suspect]
     Active Substance: RAMUCIRUMAB
     Indication: RECTAL CANCER STAGE IV
     Dosage: 8 MG/KG, CYCLICAL
     Route: 041
     Dates: start: 201807, end: 201812

REACTIONS (2)
  - Death [Fatal]
  - Haematemesis [Unknown]

NARRATIVE: CASE EVENT DATE: 201812
